FAERS Safety Report 5155159-8 (Version None)
Quarter: 2006Q4

REPORT INFORMATION
  Report Type: 
  Country: None (occurrence: None)
  Receive Date: 20061121
  Receipt Date: 20060724
  Transmission Date: 20070319
  Serious: Yes (Other)
  Sender: FDA-Public Use
  Company Number: 2006UW15063

PATIENT
  Age: 24746 Day
  Sex: Female
  Weight: 63.2 kg

DRUGS (2)
  1. FASLODEX [Suspect]
     Indication: BREAST CANCER FEMALE
     Route: 030
     Dates: start: 20060712
  2. ZOMETA [Concomitant]

REACTIONS (1)
  - STOMATITIS [None]
